FAERS Safety Report 7500543-8 (Version None)
Quarter: 2011Q2

REPORT INFORMATION
  Report Type: 
  Country: None (occurrence: None)
  Receive Date: 20110517
  Receipt Date: 20110426
  Transmission Date: 20111010
  Serious: Yes (Death)
  Sender: FDA-Public Use
  Company Number: FK201100878

PATIENT
  Age: 37 Year
  Sex: Male

DRUGS (1)
  1. FLUDARABINE (FLUDARABINE) (FLUDARABINE) [Suspect]
     Indication: LYMPHOMA

REACTIONS (5)
  - MYCOSIS FUNGOIDES [None]
  - SEPTIC SHOCK [None]
  - BLOOD CULTURE POSITIVE [None]
  - FEBRILE NEUTROPENIA [None]
  - C-REACTIVE PROTEIN INCREASED [None]
